FAERS Safety Report 14598789 (Version 1)
Quarter: 2018Q1

REPORT INFORMATION
  Report Type: Spontaneous
  Country: FR (occurrence: FR)
  Receive Date: 20180305
  Receipt Date: 20180305
  Transmission Date: 20180509
  Serious: Yes (Other)
  Sender: FDA-Public Use
  Company Number: FR-009507513-1802FRA012612

PATIENT
  Age: 61 Year
  Sex: Female
  Weight: 50 kg

DRUGS (8)
  1. ECOBEC [Suspect]
     Active Substance: BECLOMETHASONE DIPROPIONATE
     Indication: TRACHEITIS
     Dosage: 6 DF, QD
     Route: 048
     Dates: start: 20180115
  2. PERNAZENE [Suspect]
     Active Substance: TYMAZOLINE
     Indication: TRACHEITIS
     Dosage: 3 DF, QD
     Route: 045
     Dates: start: 20170109, end: 20170115
  3. ROXITHROMYCIN [Suspect]
     Active Substance: ROXITHROMYCIN
     Indication: TRACHEITIS
     Dosage: 300 MG, QD
     Route: 048
     Dates: start: 20180115, end: 20180117
  4. OXOMEMAZINE [Suspect]
     Active Substance: OXOMEMAZINE
     Indication: TRACHEITIS
     Dosage: 30 ML, QD
     Route: 048
     Dates: start: 20180115
  5. ARTOTEC [Concomitant]
     Active Substance: DICLOFENAC SODIUM\MISOPROSTOL
     Dosage: 2 DF, QD; FORMULATION: GASTRO-RESISTANT TABLET
     Route: 048
     Dates: start: 201710
  6. ZAMUDOL [Concomitant]
     Active Substance: TRAMADOL HYDROCHLORIDE
     Indication: BACK PAIN
     Dosage: 2 DF, QD; FORMULATION: PROLONGED RELEASE CAPSULE
     Route: 048
     Dates: start: 201710
  7. BETAMETHASONE. [Suspect]
     Active Substance: BETAMETHASONE
     Indication: TRACHEITIS
     Dosage: 6 DF, UNK
     Route: 048
     Dates: start: 20180109, end: 20180115
  8. POLERY ADULTES [Suspect]
     Active Substance: CODEINE\SISYMBRIUM OFFICINALE WHOLE
     Indication: TRACHEITIS
     Dosage: UNK
     Route: 048
     Dates: start: 20180109, end: 20180109

REACTIONS (1)
  - Tendonitis [Recovered/Resolved]

NARRATIVE: CASE EVENT DATE: 20180118
